FAERS Safety Report 6285606-X (Version None)
Quarter: 2009Q3

REPORT INFORMATION
  Report Type: 
  Country: None (occurrence: None)
  Receive Date: 20090724
  Receipt Date: 20090714
  Transmission Date: 20100115
  Serious: Yes (Other)
  Sender: FDA-Public Use
  Company Number: RENA-1000510

PATIENT
  Sex: Male

DRUGS (1)
  1. RENVELA [Suspect]
     Indication: HYPERPHOSPHATAEMIA
     Dosage: UNK, ORAL
     Route: 048

REACTIONS (3)
  - ABDOMINAL PAIN [None]
  - CHOLECYSTECTOMY [None]
  - WRONG TECHNIQUE IN DRUG USAGE PROCESS [None]
